FAERS Safety Report 13182438 (Version 1)
Quarter: 2017Q1

REPORT INFORMATION
  Report Type: Spontaneous
  Country: US (occurrence: US)
  Receive Date: 20170203
  Receipt Date: 20170203
  Transmission Date: 20170428
  Serious: No
  Sender: FDA-Public Use
  Company Number: US-BAYER-2017-019815

PATIENT
  Age: 52 Year
  Sex: Female
  Weight: 65.76 kg

DRUGS (2)
  1. ASA [Concomitant]
     Active Substance: ASPIRIN
  2. BETASERON [Suspect]
     Active Substance: INTERFERON BETA-1B
     Indication: MULTIPLE SCLEROSIS
     Dosage: DAILY DOSE .3 MG
     Route: 058
     Dates: start: 19920101

REACTIONS (1)
  - Influenza like illness [None]

NARRATIVE: CASE EVENT DATE: 1992
